FAERS Safety Report 16539409 (Version 2)
Quarter: 2019Q3

REPORT INFORMATION
  Report Type: Spontaneous
  Country: US (occurrence: US)
  Receive Date: 20190708
  Receipt Date: 20190715
  Transmission Date: 20191004
  Serious: Yes (Other)
  Sender: FDA-Public Use
  Company Number: US-MYLANLABS-2019M1060338

PATIENT
  Sex: Male
  Weight: 86.17 kg

DRUGS (2)
  1. LEVOTHYROXINE SODIUM TABLETS, USP [Suspect]
     Active Substance: LEVOTHYROXINE SODIUM
     Dosage: 137 MICROGRAM
  2. LEVOTHYROXINE SODIUM TABLETS, USP [Suspect]
     Active Substance: LEVOTHYROXINE SODIUM
     Indication: AUTOIMMUNE THYROIDITIS
     Dosage: 150 MICROGRAM, QD
     Route: 048
     Dates: start: 201809, end: 20190607

REACTIONS (10)
  - Hypoaesthesia [Recovering/Resolving]
  - Mental impairment [Recovering/Resolving]
  - Gastrointestinal disorder [Recovered/Resolved]
  - Respiration abnormal [Recovering/Resolving]
  - Balance disorder [Recovered/Resolved]
  - Ageusia [Recovered/Resolved with Sequelae]
  - Deafness [Recovered/Resolved]
  - Dysphagia [Recovered/Resolved]
  - Paraesthesia [Recovering/Resolving]
  - Product taste abnormal [Recovering/Resolving]
